FAERS Safety Report 9725746 (Version 7)
Quarter: 2014Q1

REPORT INFORMATION
  Report Type: Spontaneous
  Country: US (occurrence: US)
  Receive Date: 20131203
  Receipt Date: 20140227
  Transmission Date: 20141002
  Serious: Yes (Hospitalization, Other)
  Sender: FDA-Public Use
  Company Number: US-JNJFOC-20131118588

PATIENT
  Age: 81 Year
  Sex: Female
  Weight: 58.97 kg

DRUGS (5)
  1. XARELTO [Suspect]
     Indication: ANTICOAGULANT THERAPY
     Route: 048
     Dates: start: 201304
  2. XARELTO [Suspect]
     Indication: ANTICOAGULANT THERAPY
     Route: 048
     Dates: start: 20130415, end: 20130611
  3. XARELTO [Suspect]
     Indication: HEART RATE INCREASED
     Route: 048
     Dates: start: 20130415, end: 20130611
  4. XARELTO [Suspect]
     Indication: HEART RATE INCREASED
     Route: 048
     Dates: start: 201304
  5. MULTIVITAMINS [Concomitant]
     Route: 065

REACTIONS (5)
  - Urticaria [Not Recovered/Not Resolved]
  - Oropharyngeal pain [Not Recovered/Not Resolved]
  - Haematoma [Recovered/Resolved]
  - Ear haemorrhage [Recovered/Resolved]
  - Tooth socket haemorrhage [Recovered/Resolved]
